FAERS Safety Report 4305369-4 (Version None)
Quarter: 2004Q1

REPORT INFORMATION
  Report Type: 
  Country: None (occurrence: None)
  Receive Date: 20040226
  Receipt Date: 20030822
  Transmission Date: 20041129
  Serious: No
  Sender: FDA-Public Use
  Company Number: US-BRISTOL-MYERS SQUIBB COMPANY-12364881

PATIENT
  Age: 56 Year
  Sex: Male

DRUGS (1)
  1. TAXOL [Suspect]
     Indication: ACCIDENTAL EXPOSURE
     Route: 061
     Dates: start: 20030822, end: 20030822

REACTIONS (3)
  - ACCIDENTAL EXPOSURE [None]
  - BURNING SENSATION [None]
  - PRURITUS [None]
